FAERS Safety Report 5054098-0 (Version None)
Quarter: 2006Q2

REPORT INFORMATION
  Report Type: 
  Country: None (occurrence: None)
  Receive Date: 20060616
  Receipt Date: 20050527
  Transmission Date: 20061013
  Serious: Yes (Hospitalization, Other)
  Sender: FDA-Public Use
  Company Number: 200514588US

PATIENT
  Age: 21 Year
  Sex: Male

DRUGS (1)
  1. LANTUS [Suspect]
     Indication: DIABETES MELLITUS INSULIN-DEPENDENT

REACTIONS (1)
  - HYPERGLYCAEMIA [None]
